FAERS Safety Report 20721708 (Version 5)
Quarter: 2022Q3

REPORT INFORMATION
  Report Type: Spontaneous
  Country: US (occurrence: US)
  Receive Date: 20220418
  Receipt Date: 20220919
  Transmission Date: 20221027
  Serious: No
  Sender: FDA-Public Use
  Company Number: US-PFIZER INC-202200532883

PATIENT
  Age: 85 Year
  Sex: Female

DRUGS (3)
  1. IBRANCE [Suspect]
     Active Substance: PALBOCICLIB
     Dosage: 75 MG, CYCLIC (DAILY ON DAYS 1 THROUGH 21 THEN 7 DAYS OFF)
     Route: 048
     Dates: start: 20220322
  2. IBRANCE [Suspect]
     Active Substance: PALBOCICLIB
     Dosage: 100 MG, CYCLIC (ONCE DAILY ON DAYS 1 THROUGH 21, THEN 7 DAYS OFF)
     Dates: start: 20220321
  3. EXEMESTANE [Concomitant]
     Active Substance: EXEMESTANE
     Dosage: UNK

REACTIONS (14)
  - Wound haemorrhage [Unknown]
  - Skin disorder [Unknown]
  - Erythema [Unknown]
  - Pustule [Unknown]
  - Neck mass [Recovering/Resolving]
  - Arthralgia [Not Recovered/Not Resolved]
  - Mastication disorder [Not Recovered/Not Resolved]
  - Abdominal discomfort [Recovered/Resolved]
  - Weight decreased [Not Recovered/Not Resolved]
  - Skin lesion [Recovered/Resolved]
  - Chapped lips [Recovered/Resolved]
  - Taste disorder [Unknown]
  - Oral herpes [Not Recovered/Not Resolved]
  - Alopecia [Unknown]

NARRATIVE: CASE EVENT DATE: 20220101
